FAERS Safety Report 22027979 (Version 1)
Quarter: 2023Q1

REPORT INFORMATION
  Report Type: Spontaneous
  Country: US (occurrence: None)
  Receive Date: 20230215
  Receipt Date: 20230215
  Transmission Date: 20230417
  Serious: Yes (Hospitalization)
  Sender: FDA-Public Use
  Company Number: None

PATIENT
  Sex: Female

DRUGS (17)
  1. SODIUM CHLORIDE [Suspect]
     Active Substance: SODIUM CHLORIDE
     Indication: Cystic fibrosis
     Dosage: 7% INHALATION?INHALE 4 ML VIA NEBULIZER TWICE DAILY
     Route: 055
     Dates: start: 20220715
  2. SODIUM CHLORIDE [Suspect]
     Active Substance: SODIUM CHLORIDE
     Dosage: FREQUENCY : TWICE A DAY;?
     Route: 055
  3. AMOXICILLIN\CLAVULANATE POTASSIUM [Concomitant]
     Active Substance: AMOXICILLIN\CLAVULANATE POTASSIUM
  4. CEPHALEXIN SUS [Concomitant]
  5. COMPLETE CHW MULTI-VI [Concomitant]
  6. COMPLETE FORM D5000 SOFTGEL [Concomitant]
  7. CREON [Concomitant]
  8. CULTURELLE [Concomitant]
     Active Substance: LACTOBACILLUS RHAMNOSUS
  9. MAGNESIUM [Concomitant]
     Active Substance: MAGNESIUM
  10. OMEPRAZOLE [Concomitant]
     Active Substance: OMEPRAZOLE
  11. PEPPERMINT [Concomitant]
     Active Substance: PEPPERMINT
  12. PROAIR HFA AER [Concomitant]
  13. PULMOZYME [Concomitant]
     Active Substance: DORNASE ALFA
  14. REGLAN [Concomitant]
     Active Substance: METOCLOPRAMIDE HYDROCHLORIDE
  15. VENTOLIN HFA [Concomitant]
     Active Substance: ALBUTEROL SULFATE
  16. VIOKACE [Concomitant]
     Active Substance: PANCRELIPASE AMYLASE\PANCRELIPASE LIPASE\PANCRELIPASE PROTEASE
  17. ZENPEP [Concomitant]
     Active Substance: PANCRELIPASE AMYLASE\PANCRELIPASE LIPASE\PANCRELIPASE PROTEASE

REACTIONS (1)
  - Medical counselling [None]
